FAERS Safety Report 7386258-8 (Version None)
Quarter: 2011Q1

REPORT INFORMATION
  Report Type: 
  Country: None (occurrence: None)
  Receive Date: 20110331
  Receipt Date: 20110324
  Transmission Date: 20110831
  Serious: Yes (Hospitalization)
  Sender: FDA-Public Use
  Company Number: GB-NOVOPROD-324975

PATIENT
  Age: 35 Year
  Sex: Female
  Weight: 111 kg

DRUGS (1)
  1. VICTOZA [Suspect]
     Indication: PRODUCT USED FOR UNKNOWN INDICATION
     Dosage: 1.2 MG, QD
     Dates: start: 20101214

REACTIONS (2)
  - SUPRAVENTRICULAR TACHYCARDIA [None]
  - MASTITIS [None]
